FAERS Safety Report 12762255 (Version 1)
Quarter: 2016Q3

REPORT INFORMATION
  Report Type: Spontaneous
  Country: CN (occurrence: CN)
  Receive Date: 20160920
  Receipt Date: 20160920
  Transmission Date: 20161109
  Serious: Yes (Other)
  Sender: FDA-Public Use
  Company Number: PHHY2016CN127130

PATIENT
  Age: 42 Year
  Sex: Male
  Weight: 95 kg

DRUGS (5)
  1. DICLOFENAC [Suspect]
     Active Substance: DICLOFENAC
     Indication: OSTEOARTHRITIS
     Dosage: UNK
     Route: 065
  2. COLCHICINE. [Concomitant]
     Active Substance: COLCHICINE
     Indication: PRODUCT USED FOR UNKNOWN INDICATION
     Dosage: UNK
     Route: 065
  3. VOLTAREN [Suspect]
     Active Substance: DICLOFENAC SODIUM
     Dosage: 3 DF, UNK
     Route: 048
  4. VOLTAREN [Suspect]
     Active Substance: DICLOFENAC SODIUM
     Indication: OSTEOARTHRITIS
     Dosage: 2 DF, UNK
     Route: 048
  5. CALCIUM CARBONATE. [Concomitant]
     Active Substance: CALCIUM CARBONATE
     Indication: PRODUCT USED FOR UNKNOWN INDICATION
     Route: 065

REACTIONS (11)
  - Gait disturbance [Recovering/Resolving]
  - Osteoarthritis [Unknown]
  - Pain [Recovering/Resolving]
  - Arthritis [Unknown]
  - Myocardial infarction [Unknown]
  - Joint swelling [Recovering/Resolving]
  - Diarrhoea [Unknown]
  - Blood uric acid increased [Unknown]
  - Inflammation [Unknown]
  - Oedema [Unknown]
  - Burning sensation [Unknown]
